FAERS Safety Report 12994628 (Version 1)
Quarter: 2016Q4

REPORT INFORMATION
  Report Type: Spontaneous
  Country: DE (occurrence: DE)
  Receive Date: 20161202
  Receipt Date: 20161202
  Transmission Date: 20170207
  Serious: Yes (Other)
  Sender: FDA-Public Use
  Company Number: DE-TEVA-714338GER

PATIENT
  Age: 75 Year
  Sex: Female

DRUGS (2)
  1. PANTOPRAZOLE [Suspect]
     Active Substance: PANTOPRAZOLE SODIUM
     Route: 042
     Dates: start: 201611, end: 201611
  2. RANITIDINE. [Suspect]
     Active Substance: RANITIDINE
     Route: 042
     Dates: start: 201611

REACTIONS (11)
  - Language disorder [Unknown]
  - Altered state of consciousness [Unknown]
  - Syncope [Unknown]
  - Unresponsive to stimuli [Unknown]
  - Anaphylactic shock [Unknown]
  - Asthenia [Unknown]
  - Tremor [Unknown]
  - Urinary incontinence [Unknown]
  - Dyspnoea [Unknown]
  - Dizziness [Unknown]
  - Dysphagia [Unknown]

NARRATIVE: CASE EVENT DATE: 201611
